FAERS Safety Report 9507643 (Version 1)
Quarter: 2013Q1

REPORT INFORMATION
  Report Type: Spontaneous
  Country: US (occurrence: None)
  Receive Date: 20130305
  Receipt Date: 20130305
  Transmission Date: 20140127
  Serious: Yes (Other)
  Sender: FDA-Public Use
  Company Number: 163-21880-12111328

PATIENT
  Age: 74 Year
  Sex: Male
  Weight: 73.48 kg

DRUGS (9)
  1. REVLIMID (LENALIDOMIDE) (15 MILLIGRAM, CAPSULES) [Suspect]
     Indication: PLASMA CELL MYELOMA
     Dosage: 15 MG, 14 IN 14 D, PO
     Route: 048
     Dates: start: 201209, end: 20120919
  2. DIOVAN (VALSARTAN) [Concomitant]
  3. FLOMAX (TAMSULOSIN HYDROCHLORIDE) [Concomitant]
  4. LIPITOR (ATORVASTATIN) [Concomitant]
  5. NEURONTIN (GABAPENTIN) [Concomitant]
  6. PRISTIQ (DESVENLAFAXINSUCCINATE) [Concomitant]
  7. VITAMIN D (ERGOCALCIFEROL) [Concomitant]
  8. VITAMIN E (TOCOPHEROL) [Concomitant]
  9. XANAX (ALPRAZOLAM) [Concomitant]

REACTIONS (2)
  - Pneumonia [None]
  - Herpes zoster [None]
